FAERS Safety Report 8268562-4 (Version None)
Quarter: 2012Q2

REPORT INFORMATION
  Report Type: 
  Country: None (occurrence: None)
  Receive Date: 20120409
  Receipt Date: 20120402
  Transmission Date: 20120825
  Serious: Yes (Other)
  Sender: FDA-Public Use
  Company Number: US-CELGENEUS-163-21880-12031161

PATIENT
  Sex: Female
  Weight: 55.842 kg

DRUGS (23)
  1. REVLIMID [Suspect]
     Dosage: 5 MILLIGRAM
     Route: 048
     Dates: start: 20120301
  2. THERAGRAN-M [Concomitant]
     Dosage: .4 MILLIGRAM
     Route: 048
  3. VITAMIN D2 [Concomitant]
     Dosage: 50000 UNITS
     Route: 048
  4. REVLIMID [Suspect]
     Indication: MYELODYSPLASTIC SYNDROME
     Dosage: 5 MILLIGRAM
     Route: 048
     Dates: start: 20080530
  5. CALCIUM 600 + VITAMIN D [Concomitant]
     Dosage: 600 MILLIGRAM
     Route: 048
  6. MAPAP [Concomitant]
     Dosage: 325 MILLIGRAM
     Route: 048
  7. REVLIMID [Suspect]
     Dosage: 10 MILLIGRAM
     Route: 048
     Dates: start: 20110601
  8. REVLIMID [Suspect]
     Dosage: 5 MILLIGRAM
     Route: 048
     Dates: start: 20120101, end: 20120101
  9. CYANOCOBALAMIN [Concomitant]
     Dosage: 1000 MICROGRAM
     Route: 048
  10. METOPROLOL TARTRATE [Concomitant]
     Dosage: 50 MILLIGRAM
     Route: 048
  11. GALANTAMINE HYDROBROMIDE [Concomitant]
     Dosage: 8 MILLIGRAM
     Route: 048
  12. LOPERAMIDE HCL [Concomitant]
     Dosage: 2 MILLIGRAM
     Route: 048
  13. THIAMINE HCL [Concomitant]
     Dosage: 100 MILLIGRAM
     Route: 048
  14. TRAZODONE HCL [Concomitant]
     Dosage: 50 MILLIGRAM
     Route: 048
  15. REVLIMID [Suspect]
     Dosage: 5 MILLIGRAM
     Route: 048
     Dates: start: 20090801
  16. REVLIMID [Suspect]
     Dosage: 5 MILLIGRAM
     Route: 048
     Dates: start: 20100301
  17. REVLIMID [Suspect]
     Dosage: 10 MILLIGRAM
     Route: 048
     Dates: start: 20111201
  18. GLIPIZIDE [Concomitant]
     Dosage: 10 MILLIGRAM
     Route: 048
  19. ASPIRIN [Concomitant]
     Dosage: 81 MILLIGRAM
     Route: 048
  20. ERYTHROMYCIN [Concomitant]
     Route: 065
  21. VITAMIN B COMPLEX CAP [Concomitant]
     Route: 048
  22. BUSPAR [Concomitant]
     Dosage: 15 MILLIGRAM
     Route: 048
  23. FOLIC ACID [Concomitant]
     Dosage: 1 MILLIGRAM
     Route: 048

REACTIONS (3)
  - ANAEMIA [None]
  - DIARRHOEA [None]
  - DEMENTIA [None]
